FAERS Safety Report 5964470-X (Version None)
Quarter: 2008Q4

REPORT INFORMATION
  Report Type: 
  Country: None (occurrence: None)
  Receive Date: 20081124
  Receipt Date: 20081124
  Transmission Date: 20090506
  Serious: No
  Sender: FDA-Public Use
  Company Number: None

PATIENT
  Sex: Male
  Weight: 86 kg

DRUGS (3)
  1. HEPARIN [Suspect]
     Indication: EXTRACORPOREAL CIRCULATION
     Dosage: 60,000 UNITS TOTAL DOSE 3 DOSES OTHER
     Route: 050
     Dates: start: 20081118, end: 20081118
  2. ... [Concomitant]
  3. ... [Concomitant]

REACTIONS (1)
  - UNEVALUABLE EVENT [None]
